FAERS Safety Report 23695215 (Version 3)
Quarter: 2024Q2

REPORT INFORMATION
  Report Type: Spontaneous
  Country: US (occurrence: US)
  Receive Date: 20240402
  Receipt Date: 20240614
  Transmission Date: 20240716
  Serious: No
  Sender: FDA-Public Use
  Company Number: US-OPELLA-2024OHG010015

PATIENT
  Age: 86 Year
  Sex: Male

DRUGS (2)
  1. SELENIUM SULFIDE [Suspect]
     Active Substance: SELENIUM SULFIDE
     Indication: Pruritus
     Dosage: DOSE: SMALL AMOUNT, APPROXIMATELY THE SIZE OF A QUARTER; FREQUENCY: ONCE
     Route: 061
  2. SELSUN BLUE MOISTURIZING [Suspect]
     Active Substance: SELENIUM SULFIDE
     Indication: Product used for unknown indication
     Route: 061

REACTIONS (2)
  - Hair colour changes [Not Recovered/Not Resolved]
  - Expired product administered [Unknown]
